FAERS Safety Report 5609508-4 (Version None)
Quarter: 2008Q1

REPORT INFORMATION
  Report Type: 
  Country: None (occurrence: None)
  Receive Date: 20080131
  Receipt Date: 20080123
  Transmission Date: 20080703
  Serious: Yes (Life-Threatening, Hospitalization, Disabling, Other)
  Sender: FDA-Public Use
  Company Number: GB-PFIZER INC-2007006882

PATIENT
  Age: 57 Year
  Sex: Male
  Weight: 100 kg

DRUGS (4)
  1. ATORVASTATIN [Suspect]
     Route: 048
     Dates: start: 20061001, end: 20070109
  2. CLOPIDOGREL [Suspect]
     Route: 048
     Dates: start: 20061001, end: 20070109
  3. ASPIRIN [Concomitant]
     Route: 048
     Dates: start: 20061001, end: 20070109
  4. ATENOLOL [Concomitant]
     Route: 048
     Dates: start: 20061001, end: 20070109

REACTIONS (2)
  - MULTI-ORGAN FAILURE [None]
  - PANCREATITIS [None]
